FAERS Safety Report 6548501-4 (Version None)
Quarter: 2010Q1

REPORT INFORMATION
  Report Type: 
  Country: None (occurrence: None)
  Receive Date: 20100124
  Receipt Date: 20090722
  Transmission Date: 20100710
  Serious: No
  Sender: FDA-Public Use
  Company Number: US-ALLERGAN-0910153US

PATIENT
  Age: 42 Year
  Sex: Male

DRUGS (3)
  1. RESTASIS [Suspect]
     Indication: DRY EYE
     Dosage: UNK, UNKNOWN
     Route: 047
  2. RESTASIS [Suspect]
     Dosage: UNK, UNKNOWN
     Route: 047
  3. VITAMIN D [Concomitant]
     Dosage: 50000 IU, ONCE A MONTH

REACTIONS (4)
  - COUGH [None]
  - DYSPNOEA [None]
  - EYE PAIN [None]
  - RHINORRHOEA [None]
